FAERS Safety Report 7671258-0 (Version None)
Quarter: 2011Q3

REPORT INFORMATION
  Report Type: 
  Country: None (occurrence: None)
  Receive Date: 20110809
  Receipt Date: 20110729
  Transmission Date: 20111222
  Serious: Yes (Other)
  Sender: FDA-Public Use
  Company Number: US-AMGEN-USASP2011032851

PATIENT
  Age: 39 Year
  Sex: Female

DRUGS (2)
  1. ENBREL [Suspect]
     Indication: RHEUMATOID ARTHRITIS
     Dosage: 50 MG, QWK
     Dates: start: 20101101
  2. ENBREL [Suspect]
     Dosage: 50 MG, QWK
     Route: 058
     Dates: start: 20101201

REACTIONS (7)
  - WHEEZING [None]
  - COUGH [None]
  - SINUSITIS [None]
  - HEADACHE [None]
  - ABORTION SPONTANEOUS [None]
  - SINUS CONGESTION [None]
  - DYSPNOEA [None]
